FAERS Safety Report 24928346 (Version 2)
Quarter: 2025Q1

REPORT INFORMATION
  Report Type: Spontaneous
  Country: US (occurrence: US)
  Receive Date: 20250205
  Receipt Date: 20250220
  Transmission Date: 20250408
  Serious: Yes (Other)
  Sender: CATALYST PHARMA
  Company Number: US-CATALYSTPHARMACEUTICALPARTNERS-US-CATA-25-00137

PATIENT
  Age: 26 Year
  Sex: Female
  Weight: 81.6 kg

DRUGS (15)
  1. FYCOMPA [Suspect]
     Active Substance: PERAMPANEL
     Indication: Epilepsy
     Route: 048
     Dates: start: 2017
  2. FYCOMPA [Suspect]
     Active Substance: PERAMPANEL
     Indication: Petit mal epilepsy
     Dosage: 10 MG ONE TABLET DAILY
     Route: 048
     Dates: start: 20221108
  3. FYCOMPA [Suspect]
     Active Substance: PERAMPANEL
     Indication: Idiopathic generalised epilepsy
     Route: 048
  4. FYCOMPA [Suspect]
     Active Substance: PERAMPANEL
     Dosage: ONE 10 MG TABLET EVERY DAY (NIGHTLY)
     Route: 048
     Dates: end: 20250109
  5. KLONOPIN [Suspect]
     Active Substance: CLONAZEPAM
     Indication: Epilepsy
     Dosage: 1 TABLET (0.5 MG TOTAL) TWICE A DAY
     Route: 048
     Dates: start: 20250115, end: 20250121
  6. KLONOPIN [Suspect]
     Active Substance: CLONAZEPAM
     Indication: Seizure
  7. ATIVAN [Suspect]
     Active Substance: LORAZEPAM
     Indication: Epilepsy
     Dosage: .5 MG 1 TABLET EVERY 8 HOURS
     Route: 065
     Dates: start: 20250122
  8. VIMPAT [Suspect]
     Active Substance: LACOSAMIDE
     Indication: Epilepsy
     Dosage: 200 MG BID
     Route: 048
  9. VIMPAT [Suspect]
     Active Substance: LACOSAMIDE
     Dosage: TAKE 2 150 MG TABLETS (300 MG TOTAL) EVERY 12 HOURS
     Route: 048
  10. ALBUTEROL SULFATE [Concomitant]
     Active Substance: ALBUTEROL SULFATE
     Indication: Product used for unknown indication
     Route: 055
  11. ADVIL [Concomitant]
     Active Substance: IBUPROFEN
     Indication: Product used for unknown indication
     Route: 048
  12. LO LOESTRIN FE [Concomitant]
     Active Substance: ETHINYL ESTRADIOL\NORETHINDRONE ACETATE
     Indication: Product used for unknown indication
     Dosage: 1 MG-10 MCG (24)/10 MCG (2) TABLET, TAKE 1 TABLET BY MOUTH DAILY
     Route: 048
  13. ZARONTIN [Concomitant]
     Active Substance: ETHOSUXIMIDE
     Indication: Idiopathic generalised epilepsy
     Dosage: 2 CAPSULES (500 MG TOTAL) BY MOUTH EVERY 12 (TWELVE) HOURS
     Route: 048
  14. FLONASE [Concomitant]
     Active Substance: FLUTICASONE PROPIONATE
     Indication: Product used for unknown indication
     Route: 045
  15. FOLVITE [Concomitant]
     Active Substance: FOLIC ACID
     Indication: Product used for unknown indication
     Dosage: 1 TABLET EVERY DAY
     Route: 048

REACTIONS (8)
  - Seizure [Recovered/Resolved]
  - Rash [Not Recovered/Not Resolved]
  - Head injury [Recovered/Resolved]
  - Aggression [Unknown]
  - Weight increased [Unknown]
  - Feeling abnormal [Unknown]
  - Product use issue [Unknown]
  - Insurance issue [Unknown]

NARRATIVE: CASE EVENT DATE: 20250118
